FAERS Safety Report 7108077-X (Version None)
Quarter: 2010Q4

REPORT INFORMATION
  Report Type: 
  Country: None (occurrence: None)
  Receive Date: 20101115
  Receipt Date: 20101115
  Transmission Date: 20110411
  Serious: Yes (Disabling)
  Sender: FDA-Public Use
  Company Number: None

PATIENT
  Sex: Female
  Weight: 113.3993 kg

DRUGS (2)
  1. POLIDENT [Suspect]
     Indication: DENTURE WEARER
     Dosage: DENTURE CREAM 2-3X DAY ORAL
     Route: 048
     Dates: start: 19981201
  2. FIXODENT - PROCTER + GAMBLE [Suspect]
     Indication: DENTURE WEARER
     Dates: start: 19981201

REACTIONS (3)
  - HYPOAESTHESIA [None]
  - NEUROPATHY PERIPHERAL [None]
  - PARAESTHESIA [None]
